FAERS Safety Report 5379483-9 (Version None)
Quarter: 2007Q3

REPORT INFORMATION
  Report Type: 
  Country: None (occurrence: None)
  Receive Date: 20070703
  Receipt Date: 20070619
  Transmission Date: 20080115
  Serious: Yes (Hospitalization)
  Sender: FDA-Public Use
  Company Number: T200700410

PATIENT
  Age: 47 Year
  Sex: Female
  Weight: 93 kg

DRUGS (8)
  1. ULTRA-TECHNEKOW [Suspect]
     Indication: BONE SCAN
  2. OXYCODONE (OXYCODONE) UNKNOWN [Suspect]
  3. GABAPENTIN [Concomitant]
  4. CELEXA [Concomitant]
  5. ALEVE [Concomitant]
  6. IBUPROFEN [Concomitant]
  7. DIOVAN [Concomitant]
  8. LIDODERM [Concomitant]

REACTIONS (12)
  - ACCIDENTAL OVERDOSE [None]
  - BLOOD PRESSURE DECREASED [None]
  - CONVULSION [None]
  - DIZZINESS [None]
  - HYPOXIA [None]
  - LOSS OF CONSCIOUSNESS [None]
  - MALAISE [None]
  - MENTAL STATUS CHANGES [None]
  - METASTASES TO CENTRAL NERVOUS SYSTEM [None]
  - PNEUMONIA ASPIRATION [None]
  - PYREXIA [None]
  - RESPIRATORY ARREST [None]
